FAERS Safety Report 8667058 (Version 3)
Quarter: 2012Q4

REPORT INFORMATION
  Report Type: 
  Country: US (occurrence: US)
  Receive Date: 20120717
  Receipt Date: 20121220
  Transmission Date: 20130627
  Serious: Yes (Other)
  Sender: FDA-Public Use
  Company Number: US-AMGEN-USASP2012043440

PATIENT
  Age: 69 Year
  Sex: Female
  Weight: 53.06 kg

DRUGS (7)
  1. PROLIA [Suspect]
     Indication: OSTEOPOROSIS POSTMENOPAUSAL
     Dosage: 60 mg, q6mo
     Route: 058
     Dates: start: 20101007, end: 20111107
  2. PROLIA [Suspect]
  3. PROLIA [Suspect]
  4. TOPROL [Concomitant]
  5. DIOVAN [Concomitant]
  6. SIMVASTATIN [Concomitant]
  7. CALCIUM [Concomitant]

REACTIONS (4)
  - Osteonecrosis of jaw [Not Recovered/Not Resolved]
  - Loose tooth [Not Recovered/Not Resolved]
  - Tooth fracture [Not Recovered/Not Resolved]
  - Blood calcium decreased [Not Recovered/Not Resolved]
